FAERS Safety Report 10868591 (Version 1)
Quarter: 2015Q1

REPORT INFORMATION
  Report Type: Spontaneous
  Country: US (occurrence: None)
  Receive Date: 20150220
  Receipt Date: 20150220
  Transmission Date: 20150721
  Serious: No
  Sender: FDA-Public Use
  Company Number: None

PATIENT
  Age: 52 Year
  Sex: Female
  Weight: 63.5 kg

DRUGS (1)
  1. ESTRADIOL PATCH 0.0375MG MYLAN [Suspect]
     Active Substance: ESTRADIOL
     Indication: HORMONE REPLACEMENT THERAPY
     Route: 062
     Dates: start: 20150121, end: 20150219

REACTIONS (4)
  - Muscle spasms [None]
  - Product substitution issue [None]
  - Abdominal distension [None]
  - Vaginal haemorrhage [None]

NARRATIVE: CASE EVENT DATE: 20150219
